FAERS Safety Report 17263050 (Version 2)
Quarter: 2020Q4

REPORT INFORMATION
  Report Type: Report from Study
  Country: US (occurrence: US)
  Receive Date: 20200113
  Receipt Date: 20201118
  Transmission Date: 20210113
  Serious: Yes (Other)
  Sender: FDA-Public Use
  Company Number: US-PFIZER INC-2020009017

PATIENT

DRUGS (4)
  1. BMS-936558 [Suspect]
     Active Substance: NIVOLUMAB
     Indication: PERIPHERAL T-CELL LYMPHOMA UNSPECIFIED
     Dosage: 3 MG/KG, CYCLIC (GIVEN EVERY TWO WEEKS)
  2. OXALIPLATIN. [Suspect]
     Active Substance: OXALIPLATIN
     Indication: PERIPHERAL T-CELL LYMPHOMA UNSPECIFIED
     Dosage: 100 MG/M2, CYCLIC (8 BIWEEKLY CYCLES GIVEN ON DAY 1)
  3. GEMCITABINE HYDROCHLORIDE. [Suspect]
     Active Substance: GEMCITABINE HYDROCHLORIDE
     Indication: PERIPHERAL T-CELL LYMPHOMA UNSPECIFIED
     Dosage: 1000 MG/M2, CYCLIC (8 BIWEEKLY CYCLES GIVEN ON DAY 1)
  4. RITUXIMAB. [Suspect]
     Active Substance: RITUXIMAB
     Indication: PERIPHERAL T-CELL LYMPHOMA UNSPECIFIED
     Dosage: 375 MG/M2, CYCLIC (8 BIWEEKLY CYCLES GIVEN ON DAY 1)

REACTIONS (1)
  - Vasculitis [Unknown]
